FAERS Safety Report 7208009-X (Version None)
Quarter: 2010Q4

REPORT INFORMATION
  Report Type: 
  Country: None (occurrence: None)
  Receive Date: 20101222
  Receipt Date: 20101213
  Transmission Date: 20110411
  Serious: Yes (Hospitalization)
  Sender: FDA-Public Use
  Company Number: UTC-003241

PATIENT
  Age: 37 Year
  Sex: Female
  Weight: 84.1 kg

DRUGS (3)
  1. REMODULIN [Suspect]
     Indication: PULMONARY ARTERIAL HYPERTENSION
     Dosage: 44.64 UG/KG (0.031 UG/KG, 1IN 1 MIN), SUBCUTANEOUS\\
     Route: 058
     Dates: start: 20100817
  2. ADCIRCA [Suspect]
  3. DIURETICS (DIURETICS) [Concomitant]

REACTIONS (1)
  - GASTROINTESTINAL HAEMORRHAGE [None]
